FAERS Safety Report 13154816 (Version 2)
Quarter: 2017Q3

REPORT INFORMATION
  Report Type: Report from Study
  Country: US (occurrence: US)
  Receive Date: 20170126
  Receipt Date: 20170726
  Transmission Date: 20171127
  Serious: No
  Sender: FDA-Public Use
  Company Number: US-AMGEN-USASL2016170329

PATIENT
  Age: 66 Year
  Sex: Female

DRUGS (4)
  1. KYPROLIS [Suspect]
     Active Substance: CARFILZOMIB
     Dosage: UNK, ONCE A WEEK FOR FOUR WEEKS
     Route: 065
  2. VALIUM [Concomitant]
     Active Substance: DIAZEPAM
     Dosage: UNK
  3. OXYCONTIN [Concomitant]
     Active Substance: OXYCODONE HYDROCHLORIDE
     Dosage: UNK
  4. KYPROLIS [Suspect]
     Active Substance: CARFILZOMIB
     Indication: PLASMA CELL MYELOMA
     Dosage: UNK UNK, QWK ON TUESDAYS
     Route: 065

REACTIONS (9)
  - Depression [Unknown]
  - Dysgraphia [Unknown]
  - Reading disorder [Unknown]
  - Fall [Unknown]
  - Fatigue [Unknown]
  - Off label use [Unknown]
  - Contusion [Unknown]
  - Cognitive disorder [Unknown]
  - Neuropathy peripheral [Unknown]
